FAERS Safety Report 25460786 (Version 2)
Quarter: 2025Q3

REPORT INFORMATION
  Report Type: Spontaneous
  Country: JP (occurrence: JP)
  Receive Date: 20250620
  Receipt Date: 20250721
  Transmission Date: 20251021
  Serious: Yes (Hospitalization)
  Sender: ORGANON
  Company Number: JP-JT-EVA202502659ORGANON

PATIENT
  Age: 71 Year
  Sex: Male

DRUGS (4)
  1. VTAMA [Suspect]
     Active Substance: TAPINAROF
     Indication: Dermatitis atopic
     Route: 061
     Dates: start: 20241220, end: 20250307
  2. VTAMA [Suspect]
     Active Substance: TAPINAROF
     Route: 061
     Dates: start: 20250308
  3. DIFLORASONE DIACETATE [Suspect]
     Active Substance: DIFLORASONE DIACETATE
     Indication: Dermatitis atopic
     Route: 003
  4. TOPSYM [Concomitant]
     Indication: Dermatitis atopic
     Route: 003

REACTIONS (1)
  - Cellulitis [Unknown]
